FAERS Safety Report 5159296-3 (Version None)
Quarter: 2006Q4

REPORT INFORMATION
  Report Type: 
  Country: None (occurrence: None)
  Receive Date: 20061116
  Receipt Date: 20061108
  Transmission Date: 20070319
  Serious: Yes (Other)
  Sender: FDA-Public Use
  Company Number: 200610309BBE

PATIENT

DRUGS (1)
  1. HBIG (NON COMPANY DRUG) [Suspect]
     Indication: PROPHYLAXIS

REACTIONS (3)
  - COMPLICATIONS OF TRANSPLANTED LIVER [None]
  - HEPATITIS B ANTIBODY ABNORMAL [None]
  - HEPATITIS B SURFACE ANTIGEN POSITIVE [None]
